FAERS Safety Report 5709533-9 (Version None)
Quarter: 2008Q2

REPORT INFORMATION
  Report Type: 
  Country: None (occurrence: None)
  Receive Date: 20080418
  Receipt Date: 20080407
  Transmission Date: 20081010
  Serious: Yes (Other)
  Sender: FDA-Public Use
  Company Number: US-MERCK-0801USA03109

PATIENT
  Age: 6 Year
  Sex: Male
  Weight: 27 kg

DRUGS (7)
  1. SINGULAIR [Suspect]
     Indication: BRONCHIAL HYPERREACTIVITY
     Route: 048
     Dates: start: 20061127, end: 20080109
  2. PREDNISONE [Concomitant]
     Route: 048
  3. ALBUTEROL SULFATE [Concomitant]
     Route: 048
  4. ALBUTEROL SULFATE [Concomitant]
     Route: 048
  5. ALBUTEROL SULFATE [Concomitant]
     Route: 048
  6. ALBUTEROL SULFATE [Concomitant]
     Route: 048
     Dates: end: 20080109
  7. SYMBICORT [Concomitant]
     Route: 048
     Dates: start: 20071211, end: 20080109

REACTIONS (5)
  - ABNORMAL BEHAVIOUR [None]
  - ABNORMAL DREAMS [None]
  - FEELING ABNORMAL [None]
  - HALLUCINATION [None]
  - SUICIDAL IDEATION [None]
